FAERS Safety Report 7952999-4 (Version None)
Quarter: 2011Q4

REPORT INFORMATION
  Report Type: 
  Country: None (occurrence: None)
  Receive Date: 20111201
  Receipt Date: 20111128
  Transmission Date: 20120403
  Serious: Yes (Life-Threatening, Hospitalization, Other)
  Sender: FDA-Public Use
  Company Number: PHHY2011US01204

PATIENT
  Sex: Female

DRUGS (3)
  1. BACLOFEN [Concomitant]
     Dosage: 10 MG, UNK
  2. ZOLPIDEM [Concomitant]
  3. GILENYA [Suspect]
     Indication: MULTIPLE SCLEROSIS
     Dosage: 0.5 MG, QD
     Route: 048
     Dates: start: 20101208, end: 20101231

REACTIONS (23)
  - VIRAL INFECTION [None]
  - PYREXIA [None]
  - GAIT DISTURBANCE [None]
  - HAEMANGIOMA [None]
  - ASTHENIA [None]
  - LYMPHOCYTE COUNT DECREASED [None]
  - MULTIPLE SCLEROSIS RELAPSE [None]
  - HAEMOGLOBIN DECREASED [None]
  - RED BLOOD CELL COUNT DECREASED [None]
  - NEUTROPHIL COUNT INCREASED [None]
  - PNEUMONIA [None]
  - COORDINATION ABNORMAL [None]
  - BLOOD CALCIUM DECREASED [None]
  - DEMYELINATION [None]
  - HAEMATOCRIT DECREASED [None]
  - BLOOD IMMUNOGLOBULIN M INCREASED [None]
  - VOMITING [None]
  - FEELING ABNORMAL [None]
  - URINE ANALYSIS ABNORMAL [None]
  - WHITE BLOOD CELL COUNT INCREASED [None]
  - BLOOD IMMUNOGLOBULIN A DECREASED [None]
  - NECK PAIN [None]
  - BACK PAIN [None]
